FAERS Safety Report 10438348 (Version 1)
Quarter: 2014Q3

REPORT INFORMATION
  Report Type: Spontaneous
  Country: US (occurrence: US)
  Receive Date: 20140908
  Receipt Date: 20140908
  Transmission Date: 20150326
  Serious: No
  Sender: FDA-Public Use
  Company Number: US-BRISTOL-MYERS SQUIBB COMPANY-19841584

PATIENT
  Age: 64 Year
  Sex: Female

DRUGS (11)
  1. PAXIL [Concomitant]
     Active Substance: PAROXETINE HYDROCHLORIDE
     Dosage: STARTED WITH 37.5
  2. ABILIFY [Suspect]
     Active Substance: ARIPIPRAZOLE
     Indication: DEPRESSION
     Dates: start: 201306
  3. FOLIC ACID. [Concomitant]
     Active Substance: FOLIC ACID
  4. ACIPHEX [Concomitant]
     Active Substance: RABEPRAZOLE SODIUM
  5. LIPITOR [Concomitant]
     Active Substance: ATORVASTATIN CALCIUM
  6. CILOSTAZOL. [Concomitant]
     Active Substance: CILOSTAZOL
  7. LOSARTAN [Concomitant]
     Active Substance: LOSARTAN
  8. LANTUS [Concomitant]
     Active Substance: INSULIN GLARGINE
     Dosage: 1 DF: 11 UNITS
  9. PROZAC [Concomitant]
     Active Substance: FLUOXETINE HYDROCHLORIDE
  10. ASPIRIN. [Concomitant]
     Active Substance: ASPIRIN
  11. MACROBID [Concomitant]
     Active Substance: NITROFURANTOIN\NITROFURANTOIN MONOHYDRATE

REACTIONS (3)
  - Nausea [Unknown]
  - Vomiting projectile [Unknown]
  - Hyperhidrosis [Unknown]
